FAERS Safety Report 8612278 (Version 3)
Quarter: 2014Q1

REPORT INFORMATION
  Report Type: Spontaneous
  Country: DE (occurrence: DE)
  Receive Date: 20120613
  Receipt Date: 20140306
  Transmission Date: 20141002
  Serious: Yes (Hospitalization, Other)
  Sender: FDA-Public Use
  Company Number: DE-ASTRAZENECA-2012SE37472

PATIENT
  Age: 72 Year
  Sex: Female

DRUGS (1)
  1. ATACAND [Suspect]
     Route: 048
     Dates: start: 201201

REACTIONS (8)
  - Diarrhoea [Recovered/Resolved]
  - Arrhythmia [Unknown]
  - Balance disorder [Unknown]
  - Weight decreased [Unknown]
  - Pancreatitis [Unknown]
  - Vertigo [Not Recovered/Not Resolved]
  - Autonomic nervous system imbalance [Not Recovered/Not Resolved]
  - Cough [Not Recovered/Not Resolved]
